FAERS Safety Report 17715360 (Version 1)
Quarter: 2020Q2

REPORT INFORMATION
  Report Type: Spontaneous
  Country: FR (occurrence: FR)
  Receive Date: 20200427
  Receipt Date: 20200427
  Transmission Date: 20200714
  Serious: Yes (Life-Threatening)
  Sender: FDA-Public Use
  Company Number: NVSC2020FR110579

PATIENT
  Age: 38 Year
  Sex: Female

DRUGS (5)
  1. LORMETAZEPAM [Suspect]
     Active Substance: LORMETAZEPAM
     Indication: POISONING DELIBERATE
     Dosage: 28 DF, ONCE/SINGLE
     Route: 048
     Dates: start: 20191001, end: 20191001
  2. PARACETAMOL [Suspect]
     Active Substance: ACETAMINOPHEN
     Indication: POISONING DELIBERATE
     Dosage: 40 G, ONCE/SINGLE
     Route: 048
     Dates: start: 20191001, end: 20191001
  3. CONTRAMAL [Suspect]
     Active Substance: TRAMADOL HYDROCHLORIDE
     Indication: POISONING DELIBERATE
     Dosage: 1 G, QD
     Route: 048
     Dates: start: 20191001, end: 20191001
  4. TOPLEXIL (GUAIFENESIN\OXOMEMAZINE) [Suspect]
     Active Substance: GUAIFENESIN\OXOMEMAZINE
     Indication: POISONING DELIBERATE
     Dosage: 1 BOUTEILLE ENTI?RE
     Route: 048
     Dates: start: 20191001, end: 20191001
  5. ZYRTEC [Suspect]
     Active Substance: CETIRIZINE HYDROCHLORIDE
     Indication: POISONING DELIBERATE
     Dosage: 140 MG, ONCE/SINGLE
     Route: 048
     Dates: start: 20191001, end: 20191001

REACTIONS (3)
  - Hepatitis acute [Recovered/Resolved]
  - Prothrombin level decreased [Recovered/Resolved]
  - Poisoning deliberate [Recovered/Resolved]

NARRATIVE: CASE EVENT DATE: 20191001
